FAERS Safety Report 15353603 (Version 2)
Quarter: 2018Q3

REPORT INFORMATION
  Report Type: Report from Study
  Country: CA (occurrence: CA)
  Receive Date: 20180905
  Receipt Date: 20180919
  Transmission Date: 20181010
  Serious: Yes (Hospitalization)
  Sender: FDA-Public Use
  Company Number: CA-TAKEDA-2018TUS021229

PATIENT
  Age: 27 Year
  Sex: Female

DRUGS (3)
  1. VEDOLIZUMAB [Suspect]
     Active Substance: VEDOLIZUMAB
     Indication: COLITIS ULCERATIVE
     Dosage: 300 MG, UNK
     Route: 042
     Dates: start: 20180615
  2. DEXILANT [Suspect]
     Active Substance: DEXLANSOPRAZOLE
     Indication: CHEST PAIN
     Dosage: UNK
     Route: 048
     Dates: start: 201807
  3. VENOFER [Concomitant]
     Active Substance: IRON SUCROSE
     Dosage: UNK, Q2WEEKS

REACTIONS (13)
  - Colitis ulcerative [Recovered/Resolved]
  - Haematochezia [Unknown]
  - Gastritis [Recovering/Resolving]
  - Abdominal pain [Recovering/Resolving]
  - Frequent bowel movements [Recovering/Resolving]
  - Pallor [Not Recovered/Not Resolved]
  - Syncope [Unknown]
  - C-reactive protein increased [Unknown]
  - Rectal haemorrhage [Recovering/Resolving]
  - Defaecation urgency [Recovering/Resolving]
  - Asthenia [Unknown]
  - Malaise [Not Recovered/Not Resolved]
  - Fatigue [Not Recovered/Not Resolved]

NARRATIVE: CASE EVENT DATE: 2018
